FAERS Safety Report 12300142 (Version 3)
Quarter: 2016Q2

REPORT INFORMATION
  Report Type: Report from Study
  Country: FI (occurrence: FI)
  Receive Date: 20160425
  Receipt Date: 20160523
  Transmission Date: 20160815
  Serious: Yes (Life-Threatening)
  Sender: FDA-Public Use
  Company Number: FI-PACIRA PHARMACEUTICALS, INC.-2016DEPFI00677

PATIENT

DRUGS (3)
  1. G-CSF [Suspect]
     Active Substance: GRANULOCYTE COLONY-STIMULATING FACTOR NOS
     Indication: PRODUCT USED FOR UNKNOWN INDICATION
     Dosage: UNK UNK, UNK
     Route: 065
  2. DEPOCYT [Suspect]
     Active Substance: CYTARABINE
     Indication: PROPHYLACTIC CHEMOTHERAPY
     Dosage: DOSE FREQUENCY PER PROTOCOL. STUDY TREATMENT COMPLETED AUG2014
     Route: 037
  3. ETOPOSIDE. [Suspect]
     Active Substance: ETOPOSIDE
     Indication: PRODUCT USED FOR UNKNOWN INDICATION
     Dosage: UNK UNK, UNK
     Route: 065

REACTIONS (1)
  - Acute myeloid leukaemia [Not Recovered/Not Resolved]

NARRATIVE: CASE EVENT DATE: 20151111
